FAERS Safety Report 4774825-7 (Version None)
Quarter: 2005Q3

REPORT INFORMATION
  Report Type: 
  Country: None (occurrence: None)
  Receive Date: 20050919
  Receipt Date: 20050908
  Transmission Date: 20060218
  Serious: Yes (Hospitalization)
  Sender: FDA-Public Use
  Company Number: 217603

PATIENT
  Age: 3 Year
  Sex: Female

DRUGS (4)
  1. NUTROPIN AQ [Suspect]
     Indication: HYPOPITUITARISM
     Dosage: 1 MG, QD, SUBCUTANEOUS
     Route: 058
     Dates: start: 20020324
  2. SYNTHROID [Concomitant]
  3. CORTISOL [Concomitant]
  4. DDAVP (DESMOPRESSIN ACETATE) [Concomitant]

REACTIONS (2)
  - HYPERNATRAEMIA [None]
  - TREATMENT NONCOMPLIANCE [None]
